FAERS Safety Report 5443138-2 (Version None)
Quarter: 2007Q3

REPORT INFORMATION
  Report Type: 
  Country: None (occurrence: None)
  Receive Date: 20070730
  Receipt Date: 20060622
  Transmission Date: 20080115
  Serious: Yes (Other)
  Sender: FDA-Public Use
  Company Number: 2006BH011511

PATIENT
  Age: 79 Year
  Sex: Male

DRUGS (2)
  1. POLYGAM S/D [Suspect]
     Indication: DRUG USE FOR UNKNOWN INDICATION
     Dosage: 35 GM; EVERY 4 WK; IV
     Route: 042
  2. POLYGAM S/D [Suspect]

REACTIONS (1)
  - TREMOR [None]
